FAERS Safety Report 25432723 (Version 1)
Quarter: 2025Q2

REPORT INFORMATION
  Report Type: Spontaneous
  Country: US (occurrence: US)
  Receive Date: 20250613
  Receipt Date: 20250613
  Transmission Date: 20250716
  Serious: No
  Sender: ALVOGEN
  Company Number: None

PATIENT

DRUGS (1)
  1. LISDEXAMFETAMINE DIMESYLATE [Suspect]
     Active Substance: LISDEXAMFETAMINE DIMESYLATE
     Indication: Product used for unknown indication

REACTIONS (15)
  - Migraine [Unknown]
  - Brain fog [Unknown]
  - Obsessive-compulsive disorder [Unknown]
  - Fatigue [Unknown]
  - Feeling abnormal [Unknown]
  - Apathy [Unknown]
  - Loss of personal independence in daily activities [Unknown]
  - Dry mouth [Unknown]
  - Anxiety [Unknown]
  - Irritability [Unknown]
  - Depression [Unknown]
  - Nausea [Unknown]
  - Drug effect less than expected [Unknown]
  - Therapeutic response changed [Unknown]
  - Product substitution issue [Unknown]
